FAERS Safety Report 5885365-6 (Version None)
Quarter: 2008Q3

REPORT INFORMATION
  Report Type: 
  Country: None (occurrence: None)
  Receive Date: 20080916
  Receipt Date: 20080904
  Transmission Date: 20090109
  Serious: Yes (Hospitalization, Other)
  Sender: FDA-Public Use
  Company Number: US-PFIZER INC-2008075068

PATIENT
  Sex: Female
  Weight: 74.8 kg

DRUGS (13)
  1. CHANTIX [Suspect]
     Indication: EX-TOBACCO USER
     Dates: start: 20080715
  2. ANTIBIOTICS [Suspect]
     Indication: PNEUMONIA
     Dates: start: 20080728
  3. VICODIN [Concomitant]
  4. FLEXERIL [Concomitant]
  5. PROPRANOLOL [Concomitant]
  6. ROZEREM [Concomitant]
  7. XANAX [Concomitant]
  8. KLONOPIN [Concomitant]
  9. LASIX [Concomitant]
  10. ADVAIR DISKUS 100/50 [Concomitant]
  11. SPIRIVA [Concomitant]
  12. ALBUTEROL [Concomitant]
  13. LUNESTA [Concomitant]

REACTIONS (6)
  - CHRONIC OBSTRUCTIVE PULMONARY DISEASE [None]
  - PNEUMONIA [None]
  - RASH [None]
  - RESPIRATORY DISORDER [None]
  - SKIN DISCOLOURATION [None]
  - URTICARIA [None]
